FAERS Safety Report 12109534 (Version 1)
Quarter: 2016Q1

REPORT INFORMATION
  Report Type: Spontaneous
  Country: US (occurrence: None)
  Receive Date: 20160222
  Receipt Date: 20160222
  Transmission Date: 20160526
  Serious: Yes (Other)
  Sender: FDA-Public Use
  Company Number: None

PATIENT
  Age: 72 Year
  Sex: Female

DRUGS (1)
  1. IRBESARTAN 150 MG SOLCO HEALTHCARE [Suspect]
     Active Substance: IRBESARTAN
     Indication: HYPERTENSION
     Route: 048
     Dates: start: 20151103, end: 20160218

REACTIONS (3)
  - Rash generalised [None]
  - Malaise [None]
  - Pruritus generalised [None]

NARRATIVE: CASE EVENT DATE: 20151130
